FAERS Safety Report 19030115 (Version 1)
Quarter: 2021Q1

REPORT INFORMATION
  Report Type: Spontaneous
  Country: ES (occurrence: ES)
  Receive Date: 20210319
  Receipt Date: 20210319
  Transmission Date: 20210420
  Serious: Yes (Other)
  Sender: FDA-Public Use
  Company Number: ES-TEVA-2021-ES-1891510

PATIENT
  Age: 65 Year
  Sex: Female

DRUGS (1)
  1. BOSENTAN TEVA 62,5 MG COMPRIMIDOS RECUBIERTOS CON PELICULA EFG, 56 COM [Suspect]
     Active Substance: BOSENTAN
     Indication: SYSTEMIC SCLERODERMA
     Dosage: 125 MILLIGRAM DAILY;
     Route: 048
     Dates: start: 20200602, end: 20201026

REACTIONS (1)
  - Drug-induced liver injury [Recovered/Resolved]

NARRATIVE: CASE EVENT DATE: 20201020
